FAERS Safety Report 7506927-6 (Version None)
Quarter: 2011Q2

REPORT INFORMATION
  Report Type: 
  Country: None (occurrence: None)
  Receive Date: 20110526
  Receipt Date: 20110203
  Transmission Date: 20111010
  Serious: Yes (Other)
  Sender: FDA-Public Use
  Company Number: US-MYLANLABS-2011S1002387

PATIENT
  Sex: Female

DRUGS (4)
  1. ALENDRONATE SODIUM [Suspect]
     Indication: OSTEOPOROSIS
     Dates: start: 20080301, end: 20100401
  2. ALENDRONATE SODIUM [Suspect]
     Indication: OSTEOPENIA
     Dates: start: 20080301, end: 20100401
  3. FOSAMAX [Suspect]
     Indication: OSTEOPOROSIS
     Dates: start: 20001101, end: 20080301
  4. FOSAMAX [Suspect]
     Indication: OSTEOPENIA
     Dates: start: 20001101, end: 20080301

REACTIONS (2)
  - LOW TURNOVER OSTEOPATHY [None]
  - FEMUR FRACTURE [None]
